FAERS Safety Report 5611637-6 (Version None)
Quarter: 2008Q1

REPORT INFORMATION
  Report Type: 
  Country: None (occurrence: None)
  Receive Date: 20080201
  Receipt Date: 20080124
  Transmission Date: 20080703
  Serious: Yes (Hospitalization, Other)
  Sender: FDA-Public Use
  Company Number: DE-PFIZER INC-2008008221

PATIENT
  Age: 55 Year
  Sex: Female

DRUGS (8)
  1. SORTIS [Suspect]
     Indication: LOW DENSITY LIPOPROTEIN INCREASED
     Dosage: DAILY DOSE:20MG
     Route: 048
     Dates: start: 20051101, end: 20071101
  2. SORTIS [Suspect]
     Indication: CARDIOVASCULAR EVALUATION
  3. SIMVASTATIN [Suspect]
     Indication: LOW DENSITY LIPOPROTEIN INCREASED
     Dates: start: 20070101, end: 20070101
  4. SIMVASTATIN [Suspect]
     Indication: CARDIOVASCULAR EVALUATION
  5. ASPIRIN [Concomitant]
  6. PLAVIX [Concomitant]
     Route: 048
  7. METOPROLOL TARTRATE [Concomitant]
  8. RAMIPRIL [Concomitant]

REACTIONS (3)
  - BLOOD CREATINE PHOSPHOKINASE INCREASED [None]
  - MUSCLE DISORDER [None]
  - MYOCARDIAL INFARCTION [None]
